FAERS Safety Report 15947279 (Version 2)
Quarter: 2019Q1

REPORT INFORMATION
  Report Type: Spontaneous
  Country: US (occurrence: US)
  Receive Date: 20190211
  Receipt Date: 20190215
  Transmission Date: 20190417
  Serious: Yes (Other)
  Sender: FDA-Public Use
  Company Number: US-ASTRAZENECA-2018SF34783

PATIENT
  Sex: Female

DRUGS (24)
  1. TRAMADOL. [Concomitant]
     Active Substance: TRAMADOL
  2. DEXILANT [Suspect]
     Active Substance: DEXLANSOPRAZOLE
     Route: 065
     Dates: start: 2010, end: 2018
  3. LASIX [Concomitant]
     Active Substance: FUROSEMIDE
  4. NORCO [Concomitant]
     Active Substance: ACETAMINOPHEN\HYDROCODONE BITARTRATE
  5. TOPROL XL [Concomitant]
     Active Substance: METOPROLOL SUCCINATE
  6. AMITRIPTYLINE [Concomitant]
     Active Substance: AMITRIPTYLINE
  7. NEXIUM [Suspect]
     Active Substance: ESOMEPRAZOLE MAGNESIUM
     Route: 048
     Dates: start: 2010, end: 2018
  8. ATENOLOL. [Concomitant]
     Active Substance: ATENOLOL
  9. BENZONATATE. [Concomitant]
     Active Substance: BENZONATATE
  10. AMLODIPINE BESYLATE. [Concomitant]
     Active Substance: AMLODIPINE BESYLATE
  11. MEGESTROL [Concomitant]
     Active Substance: MEGESTROL
  12. LOSARTAN. [Concomitant]
     Active Substance: LOSARTAN
  13. WELLBUTRIN [Concomitant]
     Active Substance: BUPROPION HYDROCHLORIDE
  14. NEXIUM [Suspect]
     Active Substance: ESOMEPRAZOLE MAGNESIUM
     Route: 048
  15. DEXILANT [Suspect]
     Active Substance: DEXLANSOPRAZOLE
     Route: 065
  16. PROCTOFOAM [Concomitant]
     Active Substance: PRAMOXINE HYDROCHLORIDE
  17. TRIAMCINOLONE [Concomitant]
     Active Substance: TRIAMCINOLONE
  18. PROAIR HFA [Concomitant]
     Active Substance: ALBUTEROL SULFATE
  19. VIMOVO [Suspect]
     Active Substance: ESOMEPRAZOLE MAGNESIUM\NAPROXEN
     Route: 048
     Dates: start: 2010, end: 2018
  20. ACIPHEX [Suspect]
     Active Substance: RABEPRAZOLE SODIUM
     Route: 065
     Dates: start: 2010, end: 2018
  21. AMLODIPINE [Concomitant]
     Active Substance: AMLODIPINE BESYLATE
  22. DIPHENOXYLATE [Concomitant]
     Active Substance: DIPHENOXYLATE
  23. METHYLPREDNISOLONE. [Concomitant]
     Active Substance: METHYLPREDNISOLONE
  24. BUPROPION. [Concomitant]
     Active Substance: BUPROPION

REACTIONS (2)
  - Renal failure [Unknown]
  - Chronic kidney disease [Unknown]
